FAERS Safety Report 9813442 (Version 1)
Quarter: 2014Q1

REPORT INFORMATION
  Report Type: Report from Study
  Country: US (occurrence: US)
  Receive Date: 20140113
  Receipt Date: 20140113
  Transmission Date: 20141002
  Serious: Yes (Hospitalization)
  Sender: FDA-Public Use
  Company Number: US-ACTELION-A-US2014-93585

PATIENT
  Age: 27 Year
  Sex: Female

DRUGS (3)
  1. TRACLEER [Suspect]
     Indication: PULMONARY ARTERIAL HYPERTENSION
     Dosage: UNK
     Route: 048
     Dates: start: 20131028
  2. VENTAVIS [Suspect]
     Indication: PULMONARY ARTERIAL HYPERTENSION
     Dosage: UNK
     Route: 055
     Dates: start: 20131021, end: 201311
  3. VENTAVIS [Suspect]
     Dosage: UNK
     Route: 055

REACTIONS (5)
  - Convulsion [Unknown]
  - Dialysis [Unknown]
  - Device related infection [Unknown]
  - Dialysis device insertion [Unknown]
  - Blood glucose decreased [Unknown]
